FAERS Safety Report 25009547 (Version 2)
Quarter: 2025Q2

REPORT INFORMATION
  Report Type: Spontaneous
  Country: ES (occurrence: ES)
  Receive Date: 20250225
  Receipt Date: 20250527
  Transmission Date: 20250717
  Serious: Yes (Other)
  Sender: BRISTOL-MYERS SQUIBB COMPANY
  Company Number: ES-BRISTOL-MYERS SQUIBB COMPANY-2025-027576

PATIENT
  Age: 55 Year
  Sex: Female

DRUGS (1)
  1. NIVOLUMAB [Suspect]
     Active Substance: NIVOLUMAB
     Indication: Malignant melanoma of sites other than skin
     Dates: start: 2021

REACTIONS (4)
  - Facial paralysis [Unknown]
  - Restless legs syndrome [Unknown]
  - Headache [Unknown]
  - Melanoma recurrent [Unknown]
